FAERS Safety Report 18337718 (Version 1)
Quarter: 2020Q4

REPORT INFORMATION
  Report Type: Report from Study
  Country: None (occurrence: ES)
  Receive Date: 20201002
  Receipt Date: 20201002
  Transmission Date: 20210113
  Serious: Yes (Death, Life-Threatening)
  Sender: FDA-Public Use
  Company Number: ES-ABBVIE-20K-144-3589246-00

PATIENT
  Age: 83 Year
  Sex: Female

DRUGS (5)
  1. TOCILIZUMAB. [Suspect]
     Active Substance: TOCILIZUMAB
     Indication: COVID-19 PNEUMONIA
     Route: 065
     Dates: start: 20200721
  2. CEFTRIAXONA [Concomitant]
     Active Substance: CEFTRIAXONE
     Indication: PNEUMONIA
     Dosage: CEFTRIAXONA 1.000 MG INYECTABLE IV
     Route: 042
     Dates: start: 20200718, end: 20200720
  3. CLEXANE [Concomitant]
     Active Substance: ENOXAPARIN SODIUM
     Indication: PRODUCT USED FOR UNKNOWN INDICATION
     Dosage: CLEXANE 4,000 IU (40 MG) / 0.4 ML
     Dates: start: 20200718
  4. DEXAMETASONA [Concomitant]
     Active Substance: DEXAMETHASONE
     Indication: PNEUMONIA
     Route: 042
     Dates: start: 20200718
  5. KALETRA [Suspect]
     Active Substance: LOPINAVIR\RITONAVIR
     Indication: COVID-19 PNEUMONIA
     Dosage: 200/50 MG
     Route: 048
     Dates: start: 20200718

REACTIONS (2)
  - Hypertransaminasaemia [Fatal]
  - Off label use [Unknown]

NARRATIVE: CASE EVENT DATE: 20200722
